FAERS Safety Report 6111513-9 (Version None)
Quarter: 2009Q1

REPORT INFORMATION
  Report Type: 
  Country: None (occurrence: None)
  Receive Date: 20090309
  Receipt Date: 20090302
  Transmission Date: 20090719
  Serious: Yes (Death, Hospitalization)
  Sender: FDA-Public Use
  Company Number: CFNT-327 (1)

PATIENT
  Age: 38 Year
  Sex: Male

DRUGS (11)
  1. MEIACT MS TABLET (CEFDITOREN PIVOXIL) [Suspect]
     Indication: BACTERIAL INFECTION
     Dosage: 300MG ORAL
     Route: 048
     Dates: start: 20090107, end: 20090108
  2. SULPYRINE (SULPYRINE HYDRATE) [Suspect]
     Indication: INFLAMMATION
     Dosage: 0.6 G, PO
     Route: 048
     Dates: start: 20090107, end: 20090108
  3. SULPYRINE (SULPYRINE HYDRATE) [Suspect]
     Indication: PYREXIA
     Dosage: 0.6 G, PO
     Route: 048
     Dates: start: 20090107, end: 20090108
  4. CEFOCEF (CEFOPERAZONE SODIUM/SULBACTAM SODIUM) [Suspect]
     Indication: BACTERIAL INFECTION
     Dosage: 1 G, D.I.V.
     Route: 042
     Dates: start: 20090108, end: 20090109
  5. ZANAMIVIR HYDRATE [Concomitant]
  6. L-CARBOCISTEINE [Concomitant]
  7. PRONASE [Concomitant]
  8. DIPHENYLPYRALINE [Concomitant]
  9. BIFIDOBACTERIUM [Concomitant]
  10. DEQUALINIUM CHLORIDE [Concomitant]
  11. SODIUM GUALENATE HYDRATE [Concomitant]

REACTIONS (7)
  - BRAIN HERNIATION [None]
  - BRAIN OEDEMA [None]
  - CONTINUOUS HAEMODIAFILTRATION [None]
  - CONVULSION [None]
  - HEPATIC ENCEPHALOPATHY [None]
  - HEPATITIS ACUTE [None]
  - HEPATITIS FULMINANT [None]
